FAERS Safety Report 4757998-1 (Version None)
Quarter: 2005Q3

REPORT INFORMATION
  Report Type: 
  Country: None (occurrence: None)
  Receive Date: 20050826
  Receipt Date: 20050426
  Transmission Date: 20060218
  Serious: No
  Sender: FDA-Public Use
  Company Number: WAES 0504USA01494

PATIENT
  Age: 74 Year
  Sex: Male
  Weight: 110.6777 kg

DRUGS (4)
  1. ZETIA [Suspect]
     Indication: HYPERLIPIDAEMIA
     Dosage: 10 MG/DAILY/PO
     Route: 048
     Dates: start: 20041021, end: 20050322
  2. ZOCOR [Concomitant]
  3. ASPIRIN [Concomitant]
  4. WARFARIN [Concomitant]

REACTIONS (3)
  - ASTHENIA [None]
  - MUSCLE SPASMS [None]
  - PAIN IN EXTREMITY [None]
